FAERS Safety Report 9393406 (Version 1)
Quarter: 2013Q3

REPORT INFORMATION
  Report Type: Spontaneous
  Country: US (occurrence: None)
  Receive Date: 20130709
  Receipt Date: 20130709
  Transmission Date: 20140515
  Serious: Yes (Other)
  Sender: FDA-Public Use
  Company Number: None

PATIENT
  Age: 55 Year
  Sex: Female
  Weight: 81.65 kg

DRUGS (3)
  1. ESCITALOPRAM [Suspect]
     Route: 048
     Dates: start: 201211
  2. EPA-DHA [Concomitant]
  3. VITAMINS S, D, + B [Concomitant]

REACTIONS (4)
  - Product substitution issue [None]
  - Condition aggravated [None]
  - Depression [None]
  - Anxiety [None]
